FAERS Safety Report 8184655-4 (Version None)
Quarter: 2012Q1

REPORT INFORMATION
  Report Type: 
  Country: None (occurrence: None)
  Receive Date: 20120305
  Receipt Date: 20120214
  Transmission Date: 20120608
  Serious: No
  Sender: FDA-Public Use
  Company Number: US-ROXANE LABORATORIES, INC.-2012-RO-00671RO

PATIENT
  Sex: Female

DRUGS (1)
  1. ZOLPIDEM [Suspect]
     Indication: SLEEP DISORDER

REACTIONS (1)
  - SOMNOLENCE [None]
